FAERS Safety Report 24230067 (Version 5)
Quarter: 2024Q3

REPORT INFORMATION
  Report Type: Spontaneous
  Country: DE (occurrence: DE)
  Receive Date: 20240820
  Receipt Date: 20240926
  Transmission Date: 20241017
  Serious: Yes (Disabling, Other)
  Sender: GILEAD
  Company Number: DE-GILEAD-2024-0684783

PATIENT
  Age: 52 Year
  Sex: Female

DRUGS (7)
  1. YESCARTA [Suspect]
     Active Substance: AXICABTAGENE CILOLEUCEL
     Indication: Product used for unknown indication
     Dosage: UNK
     Route: 065
     Dates: start: 202407, end: 202407
  2. CLONIDINE HYDROCHLORIDE [Concomitant]
     Active Substance: CLONIDINE HYDROCHLORIDE
  3. CASPOFUNGIN [Concomitant]
     Active Substance: CASPOFUNGIN
  4. SUFENTANIL [Concomitant]
     Active Substance: SUFENTANIL
  5. MEROPENEM [Concomitant]
     Active Substance: MEROPENEM
  6. METHOTREXATE SODIUM [Concomitant]
     Active Substance: METHOTREXATE SODIUM
  7. HYDROCORTISONE [Concomitant]
     Active Substance: HYDROCORTISONE\HYDROCORTISONE ACETATE

REACTIONS (2)
  - Paraplegia [Not Recovered/Not Resolved]
  - Immune effector cell-associated neurotoxicity syndrome [Recovered/Resolved]

NARRATIVE: CASE EVENT DATE: 20240718
